FAERS Safety Report 6936009-3 (Version None)
Quarter: 2010Q3

REPORT INFORMATION
  Report Type: 
  Country: None (occurrence: None)
  Receive Date: 20100823
  Receipt Date: 20100806
  Transmission Date: 20110219
  Serious: No
  Sender: FDA-Public Use
  Company Number: US-ROXANE LABORATORIES, INC.-2010-RO-01110RO

PATIENT
  Age: 9 Year
  Sex: Female

DRUGS (1)
  1. MERCAPTOPURINE [Suspect]
     Indication: CROHN'S DISEASE
     Dosage: 50 MG
     Route: 048
     Dates: start: 20100101

REACTIONS (2)
  - ANXIETY [None]
  - OBSESSIVE-COMPULSIVE DISORDER [None]
